FAERS Safety Report 19555826 (Version 2)
Quarter: 2021Q3

REPORT INFORMATION
  Report Type: Other
  Country: AT (occurrence: AT)
  Receive Date: 20210714
  Receipt Date: 20210806
  Transmission Date: 20211014
  Serious: Yes (Hospitalization)
  Sender: FDA-Public Use
  Company Number: AT-ROCHE-2849477

PATIENT
  Age: 51 Year
  Sex: Male

DRUGS (6)
  1. GLOFITAMAB. [Suspect]
     Active Substance: GLOFITAMAB
     Route: 065
  2. GLOFITAMAB. [Suspect]
     Active Substance: GLOFITAMAB
     Route: 065
     Dates: start: 20210715
  3. OBINUTUZUMAB. [Suspect]
     Active Substance: OBINUTUZUMAB
     Indication: B-CELL LYMPHOMA
     Route: 065
  4. GLOFITAMAB. [Suspect]
     Active Substance: GLOFITAMAB
     Indication: DIFFUSE LARGE B-CELL LYMPHOMA REFRACTORY
     Dosage: 2ND DOSE: 10 MG?3RD DOSE : 30 MG
     Route: 065
  5. POLATUZUMAB VEDOTIN. [Suspect]
     Active Substance: POLATUZUMAB VEDOTIN
     Indication: B-CELL LYMPHOMA
     Route: 065
  6. RIXATHON [Suspect]
     Active Substance: RITUXIMAB
     Indication: B-CELL LYMPHOMA
     Route: 042

REACTIONS (4)
  - Febrile neutropenia [Recovered/Resolved]
  - Infection [Recovered/Resolved]
  - Blood lactate dehydrogenase increased [Unknown]
  - Cytokine release syndrome [Recovered/Resolved]
